FAERS Safety Report 11716879 (Version 3)
Quarter: 2015Q4

REPORT INFORMATION
  Report Type: Spontaneous
  Country: US (occurrence: US)
  Receive Date: 20151104
  Receipt Date: 20151120
  Transmission Date: 20160304
  Serious: No
  Sender: FDA-Public Use
  Company Number: US-ELI_LILLY_AND_COMPANY-US201104004140

PATIENT
  Age: 68 Year
  Sex: Female

DRUGS (6)
  1. FORTEO [Suspect]
     Active Substance: TERIPARATIDE
     Dosage: 20 UG, QD
     Route: 065
  2. FORTEO [Suspect]
     Active Substance: TERIPARATIDE
     Dosage: 20 UG, QD
  3. MULTIVITAMIN [Concomitant]
     Active Substance: VITAMINS
  4. CITRACAL [Concomitant]
     Active Substance: CALCIUM CITRATE
  5. FORTEO [Suspect]
     Active Substance: TERIPARATIDE
     Indication: OSTEOPOROSIS
     Dosage: 20 UG, QD
     Route: 065
     Dates: start: 20110401
  6. FORTEO [Suspect]
     Active Substance: TERIPARATIDE
     Dosage: 20 UG, QD
     Route: 065

REACTIONS (13)
  - Nephrolithiasis [Unknown]
  - Arthralgia [Unknown]
  - Abdominal discomfort [Unknown]
  - Feeling abnormal [Unknown]
  - Injection site bruising [Unknown]
  - Blood glucose increased [Unknown]
  - Rectal abscess [Unknown]
  - Abnormal dreams [Not Recovered/Not Resolved]
  - Hyperchlorhydria [Unknown]
  - Kidney infection [Unknown]
  - Body height increased [Unknown]
  - Visual impairment [Unknown]
  - Kidney infection [Unknown]

NARRATIVE: CASE EVENT DATE: 20110401
